FAERS Safety Report 21690799 (Version 1)
Quarter: 2022Q4

REPORT INFORMATION
  Report Type: Spontaneous
  Country: CA (occurrence: CA)
  Receive Date: 20221207
  Receipt Date: 20221207
  Transmission Date: 20230113
  Serious: Yes (Hospitalization, Other)
  Sender: FDA-Public Use
  Company Number: CA-HLS-202108068

PATIENT
  Age: 54 Year
  Sex: Female

DRUGS (3)
  1. CLOZAPINE [Suspect]
     Active Substance: CLOZAPINE
     Dosage: UNKNOWN
     Route: 065
  2. PERICIAZINE [Concomitant]
     Active Substance: PERICIAZINE
     Dosage: UNKNOWN
     Route: 065
  3. LITHIUM [Concomitant]
     Active Substance: LITHIUM
     Dosage: UNKNOWN
     Route: 065

REACTIONS (3)
  - Hepatitis [Unknown]
  - Poisoning [Unknown]
  - Neutropenia [Unknown]
